FAERS Safety Report 9336982 (Version 1)
Quarter: 2013Q2

REPORT INFORMATION
  Report Type: Spontaneous
  Country: DE (occurrence: DE)
  Receive Date: 20130607
  Receipt Date: 20130607
  Transmission Date: 20140414
  Serious: Yes (Other)
  Sender: FDA-Public Use
  Company Number: DE-BRISTOL-MYERS SQUIBB COMPANY-18978163

PATIENT
  Sex: Female

DRUGS (3)
  1. ABILIFY [Suspect]
  2. QUETIAPINE [Concomitant]
  3. HALOPERIDOL [Concomitant]

REACTIONS (1)
  - Psychotic disorder [Unknown]
